FAERS Safety Report 19168806 (Version 5)
Quarter: 2023Q1

REPORT INFORMATION
  Report Type: Spontaneous
  Country: JP (occurrence: JP)
  Receive Date: 20210422
  Receipt Date: 20230103
  Transmission Date: 20230418
  Serious: Yes (Hospitalization, Other)
  Sender: FDA-Public Use
  Company Number: JP-AMGEN-JPNSP2021033303

PATIENT
  Age: 18 Month
  Sex: Female
  Weight: 10.26 kg

DRUGS (22)
  1. BLINCYTO [Suspect]
     Active Substance: BLINATUMOMAB
     Indication: Acute lymphocytic leukaemia recurrent
     Dosage: 6.9 MICROGRAM, QD
     Route: 041
     Dates: start: 20210224, end: 2021
  2. BLINCYTO [Suspect]
     Active Substance: BLINATUMOMAB
     Dosage: UNK
     Route: 041
     Dates: start: 20210303, end: 20210323
  3. BLINCYTO [Suspect]
     Active Substance: BLINATUMOMAB
     Dosage: 7.2 MICROGRAM, QD
     Route: 041
     Dates: start: 20210407, end: 20210505
  4. BLINCYTO [Suspect]
     Active Substance: BLINATUMOMAB
     Dosage: UNK
     Route: 041
     Dates: start: 20210521
  5. SULFAMETHOXAZOLE\TRIMETHOPRIM [Concomitant]
     Active Substance: SULFAMETHOXAZOLE\TRIMETHOPRIM
     Indication: Prophylaxis
     Dosage: 0.25 GRAM, BID
     Dates: start: 20200129
  6. FLUCONAZOLE [Concomitant]
     Active Substance: FLUCONAZOLE
     Indication: Prophylaxis
     Dosage: 100 MILLIGRAM, QD
     Dates: start: 20200224
  7. FAMOTIDINE [Concomitant]
     Active Substance: FAMOTIDINE
     Indication: Prophylaxis
     Dosage: 10 MILLIGRAM, QD
     Dates: start: 20200124
  8. MIYA-BM [Concomitant]
     Active Substance: CLOSTRIDIUM BUTYRICUM SPORES STRAIN M-55
     Dosage: 0.33 GRAM, TID
     Dates: start: 20200128
  9. LIPIDIL [Concomitant]
     Active Substance: FENOFIBRATE
     Indication: Hypercholesterolaemia
     Dosage: 80 MILLIGRAM, QD
     Dates: start: 20200324
  10. TOCOPHEROL [Concomitant]
     Active Substance: TOCOPHEROL
     Indication: Hyperlipidaemia
     Dosage: 200 MILLIGRAM, TID
     Dates: start: 20200607
  11. LEVOTHYROXINE SODIUM [Concomitant]
     Active Substance: LEVOTHYROXINE SODIUM
     Indication: Hypothyroidism
     Dosage: 40 MICROGRAM, QD
     Dates: start: 20200427
  12. SODIUM BICARBONATE [Concomitant]
     Active Substance: SODIUM BICARBONATE
     Dosage: 0.5 GRAM, TID
     Dates: start: 20200916
  13. URINORM [BENZBROMARONE] [Concomitant]
     Indication: Hyperuricaemia
     Dosage: 12.5 MILLIGRAM, QD
     Dates: start: 20200921
  14. ALLOPURINOL [Concomitant]
     Active Substance: ALLOPURINOL
     Indication: Hyperuricaemia
     Dosage: 50 MILLIGRAM, BID
     Dates: start: 20210113
  15. TRICLOFOS SODIUM [Concomitant]
     Active Substance: TRICLOFOS SODIUM
     Dosage: 6 MILLILITER, BID
     Dates: start: 20200215
  16. SODIUM CHLORIDE [Concomitant]
     Active Substance: SODIUM CHLORIDE
     Indication: Hyponatraemia
     Dosage: 0.2 GRAM, BID
     Dates: start: 20200119
  17. CARVEDILOL [Concomitant]
     Active Substance: CARVEDILOL
     Indication: Cardiac failure chronic
     Dosage: 1 MILLIGRAM, QD
     Dates: start: 20200515, end: 20210227
  18. ENALAPRIL MALEATE [Concomitant]
     Active Substance: ENALAPRIL MALEATE
     Indication: Cardiac failure chronic
     Dosage: 1.5 MILLIGRAM, QD
     Dates: start: 20200206
  19. PLATELETS [Concomitant]
     Active Substance: HUMAN PLATELET, ALLOGENIC
  20. METHOTREXATE SODIUM [Concomitant]
     Active Substance: METHOTREXATE SODIUM
     Dosage: 8 MILLIGRAM
     Dates: start: 20210406
  21. HYDROCORTISONE [Concomitant]
     Active Substance: HYDROCORTISONE
     Dosage: 16 MILLIGRAM
  22. CYTARABINE [Concomitant]
     Active Substance: CYTARABINE
     Dosage: 20 MILLIGRAM

REACTIONS (2)
  - Myelosuppression [Recovered/Resolved]
  - Sinus arrest [Recovered/Resolved]

NARRATIVE: CASE EVENT DATE: 20210224
